FAERS Safety Report 22921934 (Version 4)
Quarter: 2024Q4

REPORT INFORMATION
  Report Type: Spontaneous
  Country: FR (occurrence: FR)
  Receive Date: 20230908
  Receipt Date: 20241230
  Transmission Date: 20250114
  Serious: Yes (Hospitalization, Disabling, Other)
  Sender: NORDIC PHARMA
  Company Number: FR-PFIZER INC-PV202300108392

PATIENT
  Age: 30 Year
  Sex: Male
  Weight: 88 kg

DRUGS (27)
  1. METHOTREXATE SODIUM [Suspect]
     Active Substance: METHOTREXATE SODIUM
     Indication: Pulmonary sarcoidosis
     Dosage: UNK
     Route: 065
     Dates: start: 20190528
  2. METHOTREXATE SODIUM [Suspect]
     Active Substance: METHOTREXATE SODIUM
     Indication: Pulmonary sarcoidosis
     Route: 065
  3. METHOTREXATE SODIUM [Suspect]
     Active Substance: METHOTREXATE SODIUM
     Indication: Pulmonary sarcoidosis
     Route: 065
     Dates: start: 202112
  4. SOLU-MEDROL [Concomitant]
     Active Substance: METHYLPREDNISOLONE SODIUM SUCCINATE
     Indication: Pulmonary sarcoidosis
     Dosage: 3-DAY BOLUS OF SOLUMEDROL 120 MG., SINGLE, HIGH-DOSE CORTICOSTEROID TREATMENT
     Route: 042
     Dates: start: 20190423, end: 20190425
  5. Cortancyl - Prednisone [Concomitant]
     Indication: Pulmonary sarcoidosis
     Route: 065
     Dates: start: 201906, end: 201906
  6. Cortancyl - Prednisone [Concomitant]
     Indication: Pulmonary sarcoidosis
     Route: 065
  7. Cortancyl - Prednisone [Concomitant]
     Indication: Pulmonary sarcoidosis
     Route: 065
     Dates: start: 20190618, end: 201909
  8. Cortancyl - Prednisone [Concomitant]
     Indication: Pulmonary sarcoidosis
     Dosage: UNTIL THE CONSULTATION IN JUL-2019
     Route: 065
     Dates: start: 201906, end: 201907
  9. Cortancyl - Prednisone [Concomitant]
     Indication: Pulmonary sarcoidosis
     Route: 065
     Dates: start: 201905, end: 20190520
  10. Cortancyl - Prednisone [Concomitant]
     Indication: Pulmonary sarcoidosis
     Route: 065
     Dates: start: 201905, end: 20190527
  11. Cortancyl - Prednisone [Concomitant]
     Indication: Pulmonary sarcoidosis
     Route: 065
     Dates: start: 201905, end: 20190513
  12. Cortancyl - Prednisone [Concomitant]
     Indication: Pulmonary sarcoidosis
     Dosage: MORNING AT 8 AM
     Route: 065
     Dates: start: 20190430, end: 20190508
  13. Cortancyl - Prednisone [Concomitant]
     Indication: Pulmonary sarcoidosis
     Route: 065
     Dates: start: 201906, end: 201906
  14. Cortancyl - Prednisone [Concomitant]
     Indication: Pulmonary sarcoidosis
     Dates: start: 20190509, end: 20190520
  15. Cortancyl - Prednisone [Concomitant]
     Indication: Pulmonary sarcoidosis
     Dates: start: 20190521, end: 20190603
  16. Cortancyl - Prednisone [Concomitant]
     Indication: Pulmonary sarcoidosis
     Dates: start: 20190604, end: 20190617
  17. Cortancyl - Prednisone [Concomitant]
     Indication: Pulmonary sarcoidosis
     Dates: start: 20190618, end: 20190901
  18. Cortancyl - Prednisone [Concomitant]
     Indication: Pulmonary sarcoidosis
     Dates: start: 20190604, end: 20190617
  19. Cortancyl - Prednisone [Concomitant]
     Indication: Pulmonary sarcoidosis
     Route: 065
  20. DUPIXENT [Concomitant]
     Active Substance: DUPILUMAB
     Indication: Dermatitis atopic
     Route: 065
     Dates: start: 201803
  21. OLUMIANT [Concomitant]
     Active Substance: BARICITINIB
     Indication: Dermatitis atopic
     Route: 065
  22. DESONIDE [Concomitant]
     Active Substance: DESONIDE
     Indication: Eczema
     Dosage: USES SMALL AMOUNTS
     Route: 065
  23. NERISONE [Concomitant]
     Active Substance: DIFLUCORTOLONE VALERATE
     Indication: Hand dermatitis
     Dosage: USES SMALL AMOUNTS
     Route: 065
  24. Emollient [Concomitant]
     Indication: Eczema
     Dosage: 1 TO 2 MONTHS
     Route: 065
  25. DEXAMBUTOL [ETHAMBUTOL DIHYDROCHLORIDE] [Concomitant]
     Indication: Tuberculosis
     Dosage: 3 COMP./DAY, FOUR-COURSE
  26. RIFATER [ISONIAZID, PYRAZINAMIDE, RIFAMPICIN] [Concomitant]
     Indication: Tuberculosis
     Dosage: 6 DF./DAY, FOUR-COURSE
  27. LEUCOVORIN [Concomitant]
     Active Substance: LEUCOVORIN\LEUCOVORIN CALCIUM
     Dosage: ON SATURDAYS

REACTIONS (4)
  - Osteonecrosis [Recovered/Resolved with Sequelae]
  - Product use in unapproved indication [Unknown]
  - Sepsis [Recovered/Resolved with Sequelae]
  - Staphylococcal bacteraemia [Recovered/Resolved with Sequelae]

NARRATIVE: CASE EVENT DATE: 20200101
